FAERS Safety Report 20376094 (Version 1)
Quarter: 2022Q1

REPORT INFORMATION
  Report Type: Report from Study
  Country: CO (occurrence: CO)
  Receive Date: 20220125
  Receipt Date: 20220125
  Transmission Date: 20220424
  Serious: Yes (Death, Other)
  Sender: FDA-Public Use
  Company Number: CO-TEVA-2022-CO-2001414

PATIENT
  Age: 52 Year
  Sex: Male
  Weight: 63 kg

DRUGS (1)
  1. RIBOMUSTIN [Suspect]
     Active Substance: BENDAMUSTINE HYDROCHLORIDE
     Indication: Chronic lymphocytic leukaemia
     Dosage: 100 MG, MONTHLY (CYCLIC)
     Route: 042
     Dates: start: 20150217

REACTIONS (2)
  - Death [Fatal]
  - Drug ineffective [Unknown]

NARRATIVE: CASE EVENT DATE: 20150504
